FAERS Safety Report 7736151-3 (Version None)
Quarter: 2011Q3

REPORT INFORMATION
  Report Type: 
  Country: None (occurrence: None)
  Receive Date: 20110908
  Receipt Date: 20110829
  Transmission Date: 20111222
  Serious: Yes (Death)
  Sender: FDA-Public Use
  Company Number: JP-GENZYME-THYM-1002567

PATIENT
  Weight: 50 kg

DRUGS (11)
  1. DALTEPARIN SODIUM [Concomitant]
     Indication: PROPHYLAXIS
     Dosage: UNK
     Dates: start: 20110104, end: 20110123
  2. MELPHALAN [Concomitant]
     Indication: ACUTE LYMPHOCYTIC LEUKAEMIA
     Dosage: UNK
     Dates: start: 20110109, end: 20110111
  3. ONDANSERTRON HYDROCHLORIDE [Concomitant]
     Indication: ANTIEMETIC SUPPORTIVE CARE
     Dosage: UNK
     Dates: start: 20110105, end: 20110112
  4. METHYLPREDNISOLONE SODIUM SUCCINATE [Concomitant]
     Indication: PREMEDICATION
     Dosage: UNK
     Dates: start: 20110110, end: 20110111
  5. GANCICLOVIR [Concomitant]
     Indication: ANTIVIRAL PROPHYLAXIS
     Dosage: UNK
     Dates: start: 20110106, end: 20110111
  6. HYDROXYZINE [Concomitant]
     Indication: PREMEDICATION
     Dosage: UNK
     Dates: start: 20110110, end: 20110111
  7. CEFOZOPRAN HYDROCHLORIDE [Concomitant]
     Indication: ANTIBIOTIC PROPHYLAXIS
     Dosage: UNK
     Dates: start: 20110105, end: 20110113
  8. ALPROSTADIL [Concomitant]
     Indication: PROPHYLAXIS
     Dosage: UNK
     Dates: start: 20110106, end: 20110123
  9. THYMOGLOBULIN [Suspect]
     Indication: BONE MARROW CONDITIONING REGIMEN
     Dosage: 63 MG, QD
     Route: 042
     Dates: start: 20110110, end: 20110111
  10. SULPYRINE [Concomitant]
     Indication: PREMEDICATION
     Dosage: UNK
     Dates: start: 20110110, end: 20110111
  11. VORICONAZOLE [Concomitant]
     Indication: ASPERGILLOSIS
     Dosage: UNK
     Dates: start: 20100810, end: 20110123

REACTIONS (2)
  - CARDIOMYOPATHY [None]
  - SEPSIS [None]
